FAERS Safety Report 7419489-9 (Version None)
Quarter: 2011Q2

REPORT INFORMATION
  Report Type: 
  Country: None (occurrence: None)
  Receive Date: 20110413
  Receipt Date: 20110413
  Transmission Date: 20111010
  Serious: No
  Sender: FDA-Public Use
  Company Number: None

PATIENT
  Age: 70 Year
  Sex: Female
  Weight: 81.6475 kg

DRUGS (1)
  1. JANUVIA [Suspect]
     Dosage: 100MG ONCE DAILY ORAL
     Route: 048
     Dates: start: 20100101

REACTIONS (1)
  - RASH [None]
